FAERS Safety Report 15844672 (Version 3)
Quarter: 2019Q1

REPORT INFORMATION
  Report Type: Spontaneous
  Country: FR (occurrence: FR)
  Receive Date: 20190118
  Receipt Date: 20190215
  Transmission Date: 20190417
  Serious: Yes (Other)
  Sender: FDA-Public Use
  Company Number: FR-PFIZER INC-2019019179

PATIENT
  Age: 49 Year
  Sex: Female

DRUGS (3)
  1. METHOTREXATE SODIUM. [Suspect]
     Active Substance: METHOTREXATE SODIUM
     Indication: DERMATITIS ATOPIC
     Dosage: 15 MG, DAILY (FOR 2 MONTHS)
     Route: 065
  2. DUPILUMAB [Concomitant]
     Active Substance: DUPILUMAB
     Indication: DERMATITIS ATOPIC
     Dosage: 300 MG, 2X/WEEK
  3. CYCLOSPORIN [Suspect]
     Active Substance: CYCLOSPORINE
     Indication: DERMATITIS ATOPIC
     Dosage: 3 MG/KG, 1X/DAY (FOR 7 MONTHS)

REACTIONS (5)
  - Rash papular [Unknown]
  - Breast ulceration [Unknown]
  - Lymphadenopathy [Unknown]
  - Product use in unapproved indication [Unknown]
  - Anaplastic large-cell lymphoma [Unknown]
